FAERS Safety Report 6474700-6 (Version None)
Quarter: 2009Q4

REPORT INFORMATION
  Report Type: 
  Country: None (occurrence: None)
  Receive Date: 20091204
  Receipt Date: 20091125
  Transmission Date: 20100525
  Serious: Yes (Life-Threatening, Hospitalization)
  Sender: FDA-Public Use
  Company Number: A0817800A

PATIENT
  Sex: Female
  Weight: 65 kg

DRUGS (10)
  1. LAPATINIB [Suspect]
     Dosage: 1250MG PER DAY
     Route: 048
     Dates: start: 20091106, end: 20091110
  2. DOCETAXEL [Suspect]
     Dosage: 122MG EVERY 3 WEEKS
     Route: 042
     Dates: start: 20091106, end: 20091106
  3. SYNTHROID [Concomitant]
     Indication: HYPOTHYROIDISM
     Dates: start: 20050601
  4. ASPIRIN [Concomitant]
     Dates: start: 20050601
  5. SERAX [Concomitant]
     Indication: SEDATION
     Dates: start: 20080401
  6. NORVASC [Concomitant]
     Indication: HYPERTENSION
     Dates: start: 20090601
  7. PARIET [Concomitant]
     Dates: start: 20090901
  8. LIPIDIL [Concomitant]
     Dates: start: 20050601
  9. OXYCONTIN [Concomitant]
     Indication: PAIN
     Dates: start: 20091008
  10. CLODRONATE [Concomitant]
     Indication: BONE DENSITOMETRY
     Dates: start: 20090801

REACTIONS (3)
  - ABDOMINAL PAIN [None]
  - COLITIS [None]
  - PYREXIA [None]
